FAERS Safety Report 9721388 (Version 3)
Quarter: 2014Q1

REPORT INFORMATION
  Report Type: Spontaneous
  Country: AU (occurrence: AU)
  Receive Date: 20131129
  Receipt Date: 20140221
  Transmission Date: 20141002
  Serious: Yes (Hospitalization, Other)
  Sender: FDA-Public Use
  Company Number: AU-009507513-1311AUS011081

PATIENT
  Age: 66 Year
  Sex: Male

DRUGS (1)
  1. ESMERON [Suspect]
     Dosage: UNK
     Dates: start: 20131125, end: 20131125

REACTIONS (3)
  - Endotracheal intubation [Not Recovered/Not Resolved]
  - Resuscitation [Unknown]
  - Anaphylactic reaction [Unknown]
